FAERS Safety Report 8844403 (Version 1)
Quarter: 2012Q4

REPORT INFORMATION
  Report Type: Spontaneous
  Country: IN (occurrence: None)
  Receive Date: 20121012
  Receipt Date: 20121012
  Transmission Date: 20130627
  Serious: Yes (Death, Hospitalization, Other)
  Sender: FDA-Public Use
  Company Number: 2012POI077000003

PATIENT
  Age: 1 Day
  Sex: Male
  Weight: 1.5 kg

DRUGS (1)
  1. ZIPSOR [Suspect]
     Route: 064

REACTIONS (8)
  - Maternal drugs affecting foetus [None]
  - Neonatal respiratory distress syndrome [None]
  - Oedema neonatal [None]
  - Weight increased [None]
  - Renal failure neonatal [None]
  - Peritoneal dialysis [None]
  - Peritonitis [None]
  - Twin pregnancy [None]
